FAERS Safety Report 19954018 (Version 1)
Quarter: 2021Q4

REPORT INFORMATION
  Report Type: Spontaneous
  Country: US (occurrence: US)
  Receive Date: 20211014
  Receipt Date: 20211014
  Transmission Date: 20220303
  Serious: Yes (Other)
  Sender: FDA-Public Use
  Company Number: None

PATIENT
  Age: 10 Year
  Sex: Male
  Weight: 24.75 kg

DRUGS (6)
  1. IPRATROPIUM BROMIDE [Suspect]
     Active Substance: IPRATROPIUM BROMIDE
     Indication: Nasal congestion
     Dosage: ?          OTHER STRENGTH:21 MCG/SPRAY;QUANTITY:2 SPRAY(S);OTHER ROUTE:NOSE
     Dates: start: 20211013, end: 20211013
  2. FISH OIL\OMEGA-3 FATTY ACIDS [Concomitant]
     Active Substance: FISH OIL\OMEGA-3 FATTY ACIDS
  3. PHOSPHATIDYL SERINE [Concomitant]
     Active Substance: PHOSPHATIDYL SERINE
  4. VITAMIN B6 [Concomitant]
     Active Substance: PYRIDOXINE HYDROCHLORIDE
  5. MAGNESIUM [Concomitant]
     Active Substance: MAGNESIUM
  6. MARITIME PINE BARK [Concomitant]

REACTIONS (7)
  - Middle insomnia [None]
  - Emotional distress [None]
  - Palpitations [None]
  - Heart rate increased [None]
  - Ocular hyperaemia [None]
  - Throat irritation [None]
  - Cough [None]

NARRATIVE: CASE EVENT DATE: 20211013
